FAERS Safety Report 23821549 (Version 2)
Quarter: 2024Q2

REPORT INFORMATION
  Report Type: Report from Study
  Country: US (occurrence: US)
  Receive Date: 20240506
  Receipt Date: 20240510
  Transmission Date: 20240715
  Serious: Yes (Death)
  Sender: FDA-Public Use
  Company Number: US-JNJFOC-20240506791

PATIENT
  Age: 56 Year
  Sex: Male

DRUGS (6)
  1. SPRAVATO [Suspect]
     Active Substance: ESKETAMINE
     Indication: Depression
     Dosage: ^56 MG, 1 TOTAL DOSE^
     Dates: start: 20231204, end: 20231204
  2. SPRAVATO [Suspect]
     Active Substance: ESKETAMINE
     Dosage: ^84 MG, 13 TOTAL DOSES^
     Dates: start: 20231206, end: 20240403
  3. ONDANSETRON [Concomitant]
     Active Substance: ONDANSETRON
     Route: 065
  4. TRINTELLIX [Concomitant]
     Active Substance: VORTIOXETINE HYDROBROMIDE
     Route: 065
  5. CLONAZEPAM [Concomitant]
     Active Substance: CLONAZEPAM
  6. ESZOPICLONE [Concomitant]
     Active Substance: ESZOPICLONE
     Route: 065

REACTIONS (1)
  - Pancreatitis [Fatal]
